FAERS Safety Report 7913572-7 (Version None)
Quarter: 2011Q4

REPORT INFORMATION
  Report Type: 
  Country: None (occurrence: None)
  Receive Date: 20111115
  Receipt Date: 20111109
  Transmission Date: 20120403
  Serious: No
  Sender: FDA-Public Use
  Company Number: US-PFIZER INC-2011275647

PATIENT
  Age: 46 Year
  Sex: Female
  Weight: 65.306 kg

DRUGS (3)
  1. REVATIO [Suspect]
     Dosage: UNK
  2. REMODULIN [Suspect]
     Indication: PULMONARY ARTERIAL HYPERTENSION
     Dosage: 34.56 UG/KG, UNK
     Route: 042
     Dates: start: 20091119
  3. AMBRISENTAN [Suspect]
     Dosage: UNK

REACTIONS (3)
  - MYALGIA [None]
  - PAINFUL RESPIRATION [None]
  - RESPIRATORY TRACT IRRITATION [None]
